FAERS Safety Report 15198516 (Version 1)
Quarter: 2018Q3

REPORT INFORMATION
  Report Type: Spontaneous
  Country: US (occurrence: US)
  Receive Date: 20180627
  Receipt Date: 20180627
  Transmission Date: 20181010
  Serious: No
  Sender: FDA-Public Use
  Company Number: None

PATIENT
  Age: 43 Year

DRUGS (4)
  1. COLESTIPOL [Concomitant]
     Active Substance: COLESTIPOL
  2. PROBIOTIC [Concomitant]
     Active Substance: PROBIOTICS NOS
  3. MULTIVITAMIN [Concomitant]
     Active Substance: VITAMINS
  4. HUMIRA [Suspect]
     Active Substance: ADALIMUMAB
     Indication: CROHN^S DISEASE
     Route: 058
     Dates: start: 20160603

REACTIONS (2)
  - Drug dose omission [None]
  - Surgery [None]

NARRATIVE: CASE EVENT DATE: 2018
